FAERS Safety Report 13504674 (Version 1)
Quarter: 2017Q2

REPORT INFORMATION
  Report Type: Report from Study
  Country: FR (occurrence: FR)
  Receive Date: 20170502
  Receipt Date: 20170502
  Transmission Date: 20170830
  Serious: Yes (Other)
  Sender: FDA-Public Use
  Company Number: PHHY2015FR134766

PATIENT
  Age: 72 Year
  Sex: Female
  Weight: 58 kg

DRUGS (4)
  1. NISISCO [Concomitant]
     Active Substance: HYDROCHLOROTHIAZIDE\VALSARTAN
     Indication: HYPERTENSION
     Dosage: (80/12..5 MG), QD
     Route: 048
     Dates: start: 20140224
  2. TASIGNA [Suspect]
     Active Substance: NILOTINIB
     Indication: CHRONIC MYELOID LEUKAEMIA
     Dosage: 300 MG, QD
     Route: 048
     Dates: start: 20110124, end: 20150528
  3. ALENDRONIC ACID [Concomitant]
     Active Substance: ALENDRONIC ACID
     Indication: OSTEOPOROSIS
     Dosage: 70 MG, QW
     Route: 065
     Dates: start: 20140224
  4. AERIUS [Concomitant]
     Active Substance: DESLORATADINE
     Indication: HYPERSENSITIVITY
     Dosage: 5 MG, QD
     Route: 065
     Dates: start: 20140224

REACTIONS (11)
  - Non-cardiac chest pain [Unknown]
  - Haemorrhoids [Unknown]
  - Fatigue [Unknown]
  - Urinary tract infection [Unknown]
  - Reflux gastritis [Unknown]
  - Loose tooth [Unknown]
  - Pericardial effusion [Recovering/Resolving]
  - Bronchitis [Unknown]
  - Dry skin [Unknown]
  - Hypoaesthesia [Unknown]
  - Visual acuity reduced [Unknown]

NARRATIVE: CASE EVENT DATE: 20140329
